FAERS Safety Report 4776445-7 (Version None)
Quarter: 2005Q3

REPORT INFORMATION
  Report Type: 
  Country: None (occurrence: None)
  Receive Date: 20050915
  Receipt Date: 20050901
  Transmission Date: 20060218
  Serious: Yes (Hospitalization)
  Sender: FDA-Public Use
  Company Number: CIP05002072

PATIENT
  Age: 59 Year
  Sex: Female

DRUGS (2)
  1. FURADANTIN [Suspect]
     Dosage: SEE IMAGE
     Route: 048
     Dates: end: 20050605
  2. FURADANTIN [Suspect]
     Dosage: SEE IMAGE
     Route: 048
     Dates: start: 20050611, end: 20050614

REACTIONS (12)
  - AUTOIMMUNE HEPATITIS [None]
  - BILE DUCT STONE [None]
  - CHOLANGITIS [None]
  - CYTOLYTIC HEPATITIS [None]
  - HEPATIC FIBROSIS [None]
  - HEPATIC PAIN [None]
  - HEPATOMEGALY [None]
  - JAUNDICE [None]
  - NAUSEA [None]
  - ODDI'S SPHINCTER CONSTRICTION [None]
  - SPLENOMEGALY [None]
  - VOMITING [None]
